FAERS Safety Report 13241720 (Version 2)
Quarter: 2017Q1

REPORT INFORMATION
  Report Type: Spontaneous
  Country: US (occurrence: US)
  Receive Date: 20170217
  Receipt Date: 20170224
  Transmission Date: 20170428
  Serious: No
  Sender: FDA-Public Use
  Company Number: US-PFIZER INC-2017064630

PATIENT
  Age: 64 Year
  Sex: Male
  Weight: 112.5 kg

DRUGS (1)
  1. BOSULIF [Suspect]
     Active Substance: BOSUTINIB MONOHYDRATE
     Indication: CHRONIC MYELOID LEUKAEMIA
     Dosage: 200 MG, DAILY
     Route: 048
     Dates: start: 20170209

REACTIONS (3)
  - Vomiting [Unknown]
  - Intentional product misuse [Unknown]
  - Dysgeusia [Unknown]

NARRATIVE: CASE EVENT DATE: 201702
